FAERS Safety Report 7092102-9 (Version None)
Quarter: 2010Q4

REPORT INFORMATION
  Report Type: 
  Country: None (occurrence: None)
  Receive Date: 20101109
  Receipt Date: 20101028
  Transmission Date: 20110411
  Serious: Yes (Hospitalization)
  Sender: FDA-Public Use
  Company Number: JP-JNJFOC-20101101769

PATIENT
  Sex: Male

DRUGS (3)
  1. MICONAZOLE NITRATE [Suspect]
     Route: 048
  2. MICONAZOLE NITRATE [Suspect]
     Indication: ORAL CANDIDIASIS
     Route: 048
  3. WARFARIN [Interacting]
     Indication: ATRIAL FIBRILLATION
     Route: 048

REACTIONS (2)
  - DRUG INTERACTION [None]
  - SHOCK HAEMORRHAGIC [None]
